FAERS Safety Report 16390001 (Version 3)
Quarter: 2019Q4

REPORT INFORMATION
  Report Type: Spontaneous
  Country: US (occurrence: US)
  Receive Date: 20190604
  Receipt Date: 20191029
  Transmission Date: 20200122
  Serious: No
  Sender: FDA-Public Use
  Company Number: US-BRISTOL-MYERS SQUIBB COMPANY-BMS-2019-054857

PATIENT
  Sex: Female

DRUGS (2)
  1. ORENCIA [Suspect]
     Active Substance: ABATACEPT
     Indication: AUTOIMMUNE DISORDER
     Dosage: 125 MILLIGRAM, QWK
     Route: 058
     Dates: start: 20190307
  2. ORENCIA [Suspect]
     Active Substance: ABATACEPT
     Indication: ARTHRITIS
     Dosage: 125 MILLIGRAM, QWK
     Route: 058
     Dates: start: 20190313

REACTIONS (4)
  - Nasopharyngitis [Unknown]
  - Oropharyngeal pain [Unknown]
  - Rhinorrhoea [Unknown]
  - Alopecia [Unknown]
